FAERS Safety Report 5175584-9 (Version None)
Quarter: 2006Q4

REPORT INFORMATION
  Report Type: 
  Country: None (occurrence: None)
  Receive Date: 20061215
  Receipt Date: 20061114
  Transmission Date: 20070319
  Serious: Yes (Hospitalization)
  Sender: FDA-Public Use
  Company Number: AU-AMGEN-US200307

PATIENT
  Sex: Male

DRUGS (4)
  1. PANITUMUMAB [Suspect]
     Indication: COLORECTAL CANCER
     Route: 042
     Dates: start: 20060823
  2. IRINOTECAN HCL [Concomitant]
     Route: 042
  3. LEUCOVORIN CALCIUM [Concomitant]
     Route: 042
  4. FLUOROURACIL [Concomitant]
     Route: 042

REACTIONS (6)
  - BLOOD CALCIUM DECREASED [None]
  - BLOOD CREATININE INCREASED [None]
  - CHOREA [None]
  - COORDINATION ABNORMAL [None]
  - DYSARTHRIA [None]
  - HYPOMAGNESAEMIA [None]
